FAERS Safety Report 10577475 (Version 1)
Quarter: 2014Q4

REPORT INFORMATION
  Report Type: Report from Study
  Country: BR (occurrence: BR)
  Receive Date: 20141111
  Receipt Date: 20141111
  Transmission Date: 20150529
  Serious: Yes (Hospitalization, Other)
  Sender: FDA-Public Use
  Company Number: BR-ABBVIE-14K-020-1304615-00

PATIENT
  Age: 33 Year
  Sex: Female
  Weight: 59 kg

DRUGS (7)
  1. GESTINOL [Concomitant]
     Indication: CONTRACEPTION
     Route: 048
  2. HUMIRA [Suspect]
     Active Substance: ADALIMUMAB
     Indication: CROHN^S DISEASE
     Dosage: UNSPECIFIED LOADING DOSE
     Route: 058
     Dates: start: 20140429, end: 20140429
  3. METRONIDAZOLE. [Concomitant]
     Active Substance: METRONIDAZOLE
     Indication: INFECTION PROPHYLAXIS
     Dosage: UNSPECIFIED DOSE
     Route: 048
     Dates: start: 20141018, end: 20141023
  4. CIPROFLOXACIN. [Concomitant]
     Active Substance: CIPROFLOXACIN
     Indication: INFECTION PROPHYLAXIS
     Route: 048
     Dates: start: 20141018, end: 20141029
  5. SPINAL ANESTHESIA TRAY [Suspect]
     Active Substance: DEVICE
     Indication: ANAESTHESIA
     Route: 065
  6. GESTINOL [Concomitant]
     Indication: ABDOMINAL PAIN
  7. HUMIRA [Suspect]
     Active Substance: ADALIMUMAB
     Route: 058

REACTIONS (6)
  - Dysstasia [Recovering/Resolving]
  - Fatigue [Recovered/Resolved]
  - Dizziness [Recovering/Resolving]
  - Anal abscess [Recovered/Resolved]
  - Pain [Recovering/Resolving]
  - Headache [Recovering/Resolving]

NARRATIVE: CASE EVENT DATE: 2014
